FAERS Safety Report 7491377-1 (Version None)
Quarter: 2011Q2

REPORT INFORMATION
  Report Type: 
  Country: None (occurrence: None)
  Receive Date: 20110519
  Receipt Date: 20110505
  Transmission Date: 20111010
  Serious: Yes (Other)
  Sender: FDA-Public Use
  Company Number: PHHY2011US39030

PATIENT

DRUGS (1)
  1. TASIGNA [Suspect]

REACTIONS (1)
  - CARDIOVASCULAR DISORDER [None]
